FAERS Safety Report 16360149 (Version 6)
Quarter: 2019Q3

REPORT INFORMATION
  Report Type: Report from Study
  Country: CA (occurrence: CA)
  Receive Date: 20190528
  Receipt Date: 20190912
  Transmission Date: 20191004
  Serious: Yes (Other)
  Sender: FDA-Public Use
  Company Number: CA-ROCHE-2195293

PATIENT
  Age: 51 Year
  Sex: Female
  Weight: 86.26 kg

DRUGS (5)
  1. SOLIFENACIN [Concomitant]
     Active Substance: SOLIFENACIN
     Route: 048
  2. OCREVUS [Suspect]
     Active Substance: OCRELIZUMAB
     Indication: RELAPSING-REMITTING MULTIPLE SCLEROSIS
     Dosage: 300 MG DAY 1, DAY 15.
     Route: 042
     Dates: start: 20181002
  3. VESICARE [Concomitant]
     Active Substance: SOLIFENACIN SUCCINATE
  4. OCREVUS [Suspect]
     Active Substance: OCRELIZUMAB
     Route: 042
  5. SYNTHROID [Concomitant]
     Active Substance: LEVOTHYROXINE SODIUM
     Route: 048

REACTIONS (16)
  - Rash macular [Recovered/Resolved]
  - Somnolence [Not Recovered/Not Resolved]
  - Neck pain [Unknown]
  - Pain in extremity [Recovered/Resolved]
  - Fatigue [Unknown]
  - Thyroid cancer [Unknown]
  - Visual impairment [Not Recovered/Not Resolved]
  - Ear pruritus [Recovered/Resolved]
  - Dry throat [Recovered/Resolved]
  - Erythema [Recovered/Resolved]
  - Temperature intolerance [Unknown]
  - Pruritus [Recovered/Resolved]
  - Headache [Not Recovered/Not Resolved]
  - Fatigue [Not Recovered/Not Resolved]
  - Humidity intolerance [Unknown]
  - Ear discomfort [Recovered/Resolved]

NARRATIVE: CASE EVENT DATE: 20181002
